FAERS Safety Report 16911097 (Version 3)
Quarter: 2020Q1

REPORT INFORMATION
  Report Type: Spontaneous
  Country: US (occurrence: US)
  Receive Date: 20191012
  Receipt Date: 20200128
  Transmission Date: 20200409
  Serious: No
  Sender: FDA-Public Use
  Company Number: US-B.I. PHARMACEUTICALS,INC./RIDGEFIELD-2019-US-107192

PATIENT
  Age: 66 Year
  Sex: Female

DRUGS (3)
  1. XANAX [Concomitant]
     Active Substance: ALPRAZOLAM
     Indication: STRESS
     Route: 065
  2. GILOTRIF [Suspect]
     Active Substance: AFATINIB
     Indication: LUNG CANCER METASTATIC
     Dosage: 20MG DAILY
     Route: 065
     Dates: start: 201702
  3. TRAZODONE [Concomitant]
     Active Substance: TRAZODONE HYDROCHLORIDE
     Indication: SLEEP DISORDER

REACTIONS (5)
  - Hair texture abnormal [Not Recovered/Not Resolved]
  - Cough [Unknown]
  - Acne [Unknown]
  - Oesophagitis [Unknown]
  - Diarrhoea [Unknown]

NARRATIVE: CASE EVENT DATE: 201702
